FAERS Safety Report 6867938-7 (Version None)
Quarter: 2010Q3

REPORT INFORMATION
  Report Type: 
  Country: None (occurrence: None)
  Receive Date: 20100722
  Receipt Date: 20080511
  Transmission Date: 20110219
  Serious: No
  Sender: FDA-Public Use
  Company Number: US-PFIZER INC-2008041594

PATIENT
  Sex: Male
  Weight: 170 kg

DRUGS (1)
  1. CHANTIX [Suspect]
     Route: 048
     Dates: start: 20080401, end: 20080511

REACTIONS (7)
  - ABNORMAL BEHAVIOUR [None]
  - ABNORMAL DREAMS [None]
  - ADVERSE EVENT [None]
  - DEPRESSION [None]
  - HOT FLUSH [None]
  - MOOD SWINGS [None]
  - RETCHING [None]
